FAERS Safety Report 24605754 (Version 1)
Quarter: 2024Q4

REPORT INFORMATION
  Report Type: Report from Study
  Country: CN (occurrence: CN)
  Receive Date: 20241111
  Receipt Date: 20241111
  Transmission Date: 20250115
  Serious: Yes (Death, Hospitalization)
  Sender: JOHNSON AND JOHNSON
  Company Number: CN-JNJFOC-20241117252

PATIENT
  Age: 79 Year
  Sex: Male
  Weight: 54.5 kg

DRUGS (12)
  1. ZYTIGA [Suspect]
     Active Substance: ABIRATERONE ACETATE
     Indication: Prostate cancer metastatic
     Dosage: 4 TABLETS ONCE A DAY
     Route: 048
     Dates: start: 20200119, end: 20200511
  2. PRUXELUTAMIDE [Suspect]
     Active Substance: PRUXELUTAMIDE
     Indication: Prostate cancer metastatic
     Dosage: 4 TABLETS ONCE A DA
     Route: 048
     Dates: start: 20200119, end: 20200511
  3. PREDNISONE ACETATE [Suspect]
     Active Substance: PREDNISONE ACETATE
     Indication: Prostate cancer metastatic
     Dosage: , 1 TABLET TWICE A DAY
     Route: 048
     Dates: start: 20200119, end: 20200511
  4. ESTRAMUSTINE PHOSPHATE [Concomitant]
     Active Substance: ESTRAMUSTINE PHOSPHATE
     Indication: Prostate cancer
     Route: 048
     Dates: start: 20200518
  5. POTASSIUM CHLORIDE [Concomitant]
     Active Substance: POTASSIUM CHLORIDE
     Indication: Decreased appetite
     Route: 042
     Dates: start: 20200512, end: 20200518
  6. REDUCED GLUTATHIONE [Concomitant]
     Route: 042
     Dates: start: 20200512, end: 20200518
  7. URSODIOL [Concomitant]
     Active Substance: URSODIOL
     Indication: Blood bilirubin increased
     Route: 048
     Dates: start: 20200512
  8. ZOLEDRONIC ACID [Concomitant]
     Active Substance: ZOLEDRONIC ACID
     Indication: Metastases to bone
     Route: 042
     Dates: start: 20200514, end: 20200514
  9. CELECOXIB [Concomitant]
     Active Substance: CELECOXIB
     Indication: Groin pain
     Route: 048
     Dates: start: 20200518
  10. LEUCOGEN [Concomitant]
     Active Substance: LEUCOGEN
     Indication: White blood cell count decreased
     Route: 048
     Dates: start: 20200518
  11. ASPIRIN [Concomitant]
     Active Substance: ASPIRIN
     Indication: Thrombosis
     Route: 048
     Dates: start: 20200518
  12. POTASSIUM CHLORIDE [Concomitant]
     Active Substance: POTASSIUM CHLORIDE
     Indication: Hypokalaemia
     Route: 048

REACTIONS (2)
  - Prostate cancer metastatic [Fatal]
  - Weight decreased [Not Recovered/Not Resolved]

NARRATIVE: CASE EVENT DATE: 20200512
